FAERS Safety Report 23953474 (Version 1)
Quarter: 2024Q2

REPORT INFORMATION
  Report Type: Spontaneous
  Country: DE (occurrence: DE)
  Receive Date: 20240608
  Receipt Date: 20240608
  Transmission Date: 20240716
  Serious: Yes (Hospitalization)
  Sender: FDA-Public Use
  Company Number: DE-AMK-275858

PATIENT
  Age: 84 Year
  Sex: Female

DRUGS (1)
  1. AVASTIN [Suspect]
     Active Substance: BEVACIZUMAB
     Indication: Breast cancer female
     Dosage: 13
     Route: 065
     Dates: start: 20240312

REACTIONS (1)
  - Non-infectious endophthalmitis [Not Recovered/Not Resolved]

NARRATIVE: CASE EVENT DATE: 20240315
